FAERS Safety Report 24712019 (Version 4)
Quarter: 2025Q3

REPORT INFORMATION
  Report Type: Spontaneous
  Country: JP (occurrence: JP)
  Receive Date: 20241209
  Receipt Date: 20250802
  Transmission Date: 20251021
  Serious: Yes (Other)
  Sender: ALEXION PHARMACEUTICALS
  Company Number: JP-ASTRAZENECA-240108661_063010_P_1

PATIENT
  Age: 74 Year
  Sex: Male

DRUGS (12)
  1. DAPAGLIFLOZIN [Suspect]
     Active Substance: DAPAGLIFLOZIN
     Indication: Chronic kidney disease
     Dosage: AFTER BREAKFAST
     Dates: start: 20221223
  2. DAPAGLIFLOZIN [Suspect]
     Active Substance: DAPAGLIFLOZIN
     Dosage: AFTER BREAKFAST
     Dates: start: 20221223
  3. BISOPROLOL FUMARATE [Concomitant]
     Active Substance: BISOPROLOL FUMARATE
     Dosage: AFTER BREAKFAST AND EVENING MEAL
     Dates: start: 20221223
  4. ISOSORBIDE DINITRATE [Concomitant]
     Active Substance: ISOSORBIDE DINITRATE
     Indication: Vasodilatation
     Dosage: AFTER EVENING MEAL
     Dates: start: 20221223
  5. NIFEDIPINE [Concomitant]
     Active Substance: NIFEDIPINE
     Indication: Vasodilatation
     Dosage: AFTER BREAKFAST AND EVENING MEAL
     Dates: start: 20221223
  6. NIFEDIPINE [Concomitant]
     Active Substance: NIFEDIPINE
     Dosage: AFTER BREAKFAST AND EVENING MEAL
     Dates: start: 20221223
  7. NIFEDIPINE [Concomitant]
     Active Substance: NIFEDIPINE
  8. TOPIROXOSTAT [Concomitant]
     Active Substance: TOPIROXOSTAT
     Indication: Hyperuricaemia
     Dosage: AFTER BREAKFAST AND EVENING MEAL
     Dates: start: 20221223
  9. ICOSAPENT ETHYL [Concomitant]
     Active Substance: ICOSAPENT ETHYL
     Dosage: AFTER BREAKFAST AND EVENING MEAL
     Dates: start: 20221223
  10. PITAVASTATIN [Concomitant]
     Active Substance: PITAVASTATIN
     Dosage: AFTER EVENING MEAL
     Dates: start: 20221223
  11. VALSARTAN [Concomitant]
     Active Substance: VALSARTAN
     Indication: Hypertension
     Dosage: AFTER EVENING MEAL
     Dates: start: 20221223
  12. PITAVASTATIN CALCIUM [Concomitant]
     Active Substance: PITAVASTATIN CALCIUM
     Dosage: AFTER EVENING MEAL
     Dates: start: 20221223

REACTIONS (1)
  - Microscopic polyangiitis [Recovering/Resolving]

NARRATIVE: CASE EVENT DATE: 20230421
